FAERS Safety Report 16591428 (Version 1)
Quarter: 2019Q3

REPORT INFORMATION
  Report Type: Spontaneous
  Country: US (occurrence: US)
  Receive Date: 20190718
  Receipt Date: 20190718
  Transmission Date: 20191004
  Serious: No
  Sender: FDA-Public Use
  Company Number: US-PFIZER INC-2019303627

PATIENT

DRUGS (1)
  1. XELJANZ [Suspect]
     Active Substance: TOFACITINIB CITRATE
     Indication: INFLAMMATORY BOWEL DISEASE
     Dosage: UNK

REACTIONS (3)
  - Blood alkaline phosphatase increased [Unknown]
  - Product use in unapproved indication [Unknown]
  - Off label use [Unknown]
